FAERS Safety Report 8731564 (Version 2)
Quarter: 2012Q4

REPORT INFORMATION
  Report Type: 
  Country: JP (occurrence: JP)
  Receive Date: 20120820
  Receipt Date: 20120831
  Transmission Date: 20130627
  Serious: Yes (Hospitalization)
  Sender: FDA-Public Use
  Company Number: JP-JNJFOC-20120807792

PATIENT
  Age: 29 Year
  Sex: Female

DRUGS (8)
  1. RISPERDAL [Suspect]
     Indication: PRODUCT USED FOR UNKNOWN INDICATION
     Route: 048
  2. ROHYPNOL [Suspect]
     Indication: PRODUCT USED FOR UNKNOWN INDICATION
     Route: 048
  3. PHENOTHIAZINE [Suspect]
     Indication: PRODUCT USED FOR UNKNOWN INDICATION
     Route: 048
  4. LITHIUM CARBONATE [Suspect]
     Indication: PRODUCT USED FOR UNKNOWN INDICATION
     Route: 048
  5. DEXMEDETOMIDINE HYDROCHLORIDE [Concomitant]
     Dosage: per 1 hour
     Route: 065
  6. DEXMEDETOMIDINE HYDROCHLORIDE [Concomitant]
     Dosage: per 1 hour
     Route: 065
  7. DEXMEDETOMIDINE HYDROCHLORIDE [Concomitant]
     Dosage: per 1 hour
     Route: 065
  8. DEXMEDETOMIDINE HYDROCHLORIDE [Concomitant]
     Dosage: per 1 hour
     Route: 065

REACTIONS (3)
  - Overdose [Unknown]
  - Suicide attempt [Recovered/Resolved]
  - Altered state of consciousness [Recovered/Resolved]
